FAERS Safety Report 5864331-0 (Version None)
Quarter: 2008Q3

REPORT INFORMATION
  Report Type: 
  Country: None (occurrence: None)
  Receive Date: 20080829
  Receipt Date: 20080613
  Transmission Date: 20090109
  Serious: No
  Sender: FDA-Public Use
  Company Number: US-ABBOTT-08P-163-0457213-00

PATIENT
  Sex: Male
  Weight: 118.04 kg

DRUGS (3)
  1. SIMCOR [Suspect]
     Indication: HIGH DENSITY LIPOPROTEIN DECREASED
     Route: 048
     Dates: start: 20080501
  2. PAROXETINE HCL [Concomitant]
     Indication: DEPRESSION
     Route: 048
  3. MEFENAMIC ACID [Concomitant]
     Indication: BACK PAIN
     Route: 048

REACTIONS (4)
  - ERYTHEMA [None]
  - FEELING HOT [None]
  - HYPERHIDROSIS [None]
  - PRURITUS [None]
